FAERS Safety Report 24857699 (Version 1)
Quarter: 2025Q1

REPORT INFORMATION
  Report Type: Spontaneous
  Country: US (occurrence: US)
  Receive Date: 20250117
  Receipt Date: 20250117
  Transmission Date: 20250408
  Serious: Yes (Other)
  Sender: PFIZER
  Company Number: US-PFIZER INC-202500009302

PATIENT

DRUGS (1)
  1. SPIRONOLACTONE [Suspect]
     Active Substance: SPIRONOLACTONE

REACTIONS (8)
  - Near death experience [Unknown]
  - Heart rate increased [Unknown]
  - Impaired driving ability [Unknown]
  - Dizziness [Unknown]
  - Headache [Unknown]
  - Abdominal distension [Unknown]
  - Joint effusion [Unknown]
  - Burning sensation [Unknown]
